FAERS Safety Report 4614316-7 (Version None)
Quarter: 2005Q1

REPORT INFORMATION
  Report Type: 
  Country: None (occurrence: None)
  Receive Date: 20050308
  Receipt Date: 20041111
  Transmission Date: 20050727
  Serious: Yes (Other)
  Sender: FDA-Public Use
  Company Number: 2004UW23355

PATIENT
  Age: 50 Year
  Sex: Male
  Weight: 108.86 kg

DRUGS (4)
  1. CRESTOR [Suspect]
     Indication: BLOOD CHOLESTEROL INCREASED
     Dates: start: 20041001
  2. ULTRAM [Concomitant]
  3. DARVOCET-N 100 [Concomitant]
  4. NO MATCH [Concomitant]

REACTIONS (2)
  - ABDOMINAL PAIN UPPER [None]
  - BLOOD CHOLESTEROL INCREASED [None]
